FAERS Safety Report 16677312 (Version 1)
Quarter: 2019Q3

REPORT INFORMATION
  Report Type: Spontaneous
  Country: CA (occurrence: CA)
  Receive Date: 20190807
  Receipt Date: 20190807
  Transmission Date: 20191004
  Serious: Yes (Other)
  Sender: FDA-Public Use
  Company Number: CA-MACLEODS PHARMACEUTICALS US LTD-MAC2019022395

PATIENT

DRUGS (2)
  1. VENLAFAXINE [Suspect]
     Active Substance: VENLAFAXINE HYDROCHLORIDE
     Dosage: 75 MG, THE CUMULATIVE PERSON-MONTH (P-M) DOSE OF VENLAFAXINE WAS 128
     Route: 065
     Dates: start: 201412, end: 201412
  2. VENLAFAXINE [Suspect]
     Active Substance: VENLAFAXINE HYDROCHLORIDE
     Indication: DEPRESSION
     Dosage: 37.5 MG,  THE CUMULATIVE PERSON-MONTH (P-M) DOSE OF VENLAFAXINE WAS 128
     Route: 065
     Dates: start: 200405, end: 201401

REACTIONS (2)
  - Bronchiectasis [Recovering/Resolving]
  - Interstitial lung disease [Recovering/Resolving]

NARRATIVE: CASE EVENT DATE: 201006
